FAERS Safety Report 8803239 (Version 1)
Quarter: 2012Q4

REPORT INFORMATION
  Report Type: Report from Study
  Country: US (occurrence: US)
  Receive Date: 20120924
  Receipt Date: 20120924
  Transmission Date: 20130627
  Serious: Yes (Other)
  Sender: FDA-Public Use
  Company Number: US-JNJFOC-20120905769

PATIENT
  Age: 10 None
  Sex: Male
  Weight: 29.03 kg

DRUGS (2)
  1. REMICADE [Suspect]
     Indication: CROHN^S DISEASE
     Route: 042
     Dates: start: 2010
  2. TOPICAL CREAMS [Concomitant]
     Indication: ECZEMA
     Route: 061
     Dates: start: 2004

REACTIONS (4)
  - Skin disorder [Not Recovered/Not Resolved]
  - Weight gain poor [Not Recovered/Not Resolved]
  - Growth retardation [Not Recovered/Not Resolved]
  - Diarrhoea [Unknown]
